FAERS Safety Report 22080987 (Version 2)
Quarter: 2023Q1

REPORT INFORMATION
  Report Type: Spontaneous
  Country: CN (occurrence: CN)
  Receive Date: 20230309
  Receipt Date: 20230314
  Transmission Date: 20230418
  Serious: Yes (Other)
  Sender: FDA-Public Use
  Company Number: CN-PFIZER INC-PV202300042920

PATIENT
  Age: 28 Year
  Sex: Female

DRUGS (4)
  1. EPIRUBICIN HYDROCHLORIDE [Suspect]
     Active Substance: EPIRUBICIN HYDROCHLORIDE
     Indication: Breast cancer
     Dosage: 190 MG, FOR 4 COURSES
     Dates: start: 20190124
  2. PACLITAXEL [Suspect]
     Active Substance: PACLITAXEL
     Indication: Chemotherapy
     Dosage: 45 ML, FOR 4 COURSES
     Dates: start: 20190422
  3. CYCLOPHOSPHAMIDE [Suspect]
     Active Substance: CYCLOPHOSPHAMIDE
     Indication: Chemotherapy
     Dosage: 1 G, FOR 4 COURSES
     Dates: start: 20190124
  4. TOREMIFENE [Concomitant]
     Active Substance: TOREMIFENE
     Indication: Therapeutic procedure
     Dosage: 60 MG, 1X/DAY
     Route: 048
     Dates: start: 2019

REACTIONS (2)
  - Second primary malignancy [Recovering/Resolving]
  - Acute promyelocytic leukaemia [Recovering/Resolving]
